FAERS Safety Report 14914744 (Version 3)
Quarter: 2018Q3

REPORT INFORMATION
  Report Type: Spontaneous
  Country: US (occurrence: US)
  Receive Date: 20180518
  Receipt Date: 20180809
  Transmission Date: 20181010
  Serious: No
  Sender: FDA-Public Use
  Company Number: US-PFIZER INC-2018201613

PATIENT
  Age: 58 Year
  Sex: Female

DRUGS (4)
  1. CODEINE PHOSPHATE [Suspect]
     Active Substance: CODEINE PHOSPHATE
     Dosage: UNK
     Dates: start: 1980
  2. MORPHINE SULFATE. [Suspect]
     Active Substance: MORPHINE SULFATE
     Dosage: UNK
     Dates: start: 1980
  3. CODEINE SULFATE. [Suspect]
     Active Substance: CODEINE SULFATE
     Dosage: UNK
     Dates: start: 1980
  4. ASA [Suspect]
     Active Substance: ASPIRIN
     Dosage: UNK
     Dates: start: 1980

REACTIONS (1)
  - Drug hypersensitivity [Not Recovered/Not Resolved]
